FAERS Safety Report 16170100 (Version 1)
Quarter: 2019Q2

REPORT INFORMATION
  Report Type: Report from Study
  Country: GB (occurrence: GB)
  Receive Date: 20190408
  Receipt Date: 20190408
  Transmission Date: 20190711
  Serious: Yes (Death, Life-Threatening, Hospitalization, Other)
  Sender: FDA-Public Use
  Company Number: GB-PFIZER INC-9512700

PATIENT
  Age: 51 Year
  Sex: Male
  Weight: 63.5 kg

DRUGS (12)
  1. VORICONAZOLE. [Suspect]
     Active Substance: VORICONAZOLE
     Indication: ASPERGILLUS INFECTION
     Dosage: 360 MG, DAILY ((2 LOADING DOSES OF 360 MG [I.E., 6 MG/KG])
     Route: 042
     Dates: start: 19951115, end: 19951115
  2. VORICONAZOLE. [Suspect]
     Active Substance: VORICONAZOLE
     Indication: SINUSITIS ASPERGILLUS
     Dosage: 180 MG, Q12H (I.E., 3 MG/KG)
     Route: 042
     Dates: start: 19951116, end: 19951119
  3. TEMAZEPAM. [Concomitant]
     Active Substance: TEMAZEPAM
     Dosage: 10 MG, UNK
  4. DOSULEPIN HYDROCHLORIDE [Concomitant]
     Active Substance: DOTHIEPIN HYDROCHLORIDE
     Dosage: UNK
  5. METOCLOPRAMIDE. [Concomitant]
     Active Substance: METOCLOPRAMIDE
     Dosage: UNK
  6. DICLOFENAC [Concomitant]
     Active Substance: DICLOFENAC
     Dosage: 50 MG, TID
  7. PETHIDINE [Concomitant]
     Active Substance: MEPERIDINE
     Dosage: UNK
  8. PARACETAMOL CODEINE [Concomitant]
     Active Substance: ACETAMINOPHEN\CODEINE PHOSPHATE
     Dosage: UNK
  9. AMPHOTERICIN B. [Suspect]
     Active Substance: AMPHOTERICIN B
     Dosage: UNK
     Dates: start: 19951124, end: 19951227
  10. DOTHIEPINE HYDROCHLORIDE [Concomitant]
     Dosage: 100 MG, 1X/DAY
  11. DIHYDROCODEINE [Concomitant]
     Active Substance: DIHYDROCODEINE
     Dosage: UNK
  12. ITRACONAZOLE. [Suspect]
     Active Substance: ITRACONAZOLE
     Indication: ASPERGILLUS INFECTION
     Dosage: UNK

REACTIONS (14)
  - Respiratory failure [Unknown]
  - Drug ineffective [Unknown]
  - Hypoglycaemia [Recovered/Resolved]
  - Confusional state [Unknown]
  - Hepatic failure [Unknown]
  - Hepatosplenomegaly [Unknown]
  - Feeling drunk [Unknown]
  - Lymphopenia [Unknown]
  - Post procedural haemorrhage [Fatal]
  - Acute respiratory distress syndrome [Not Recovered/Not Resolved]
  - Renal failure [Unknown]
  - Hepatic cirrhosis [Unknown]
  - Drug level increased [Unknown]
  - CD4 lymphocytes decreased [Unknown]

NARRATIVE: CASE EVENT DATE: 1995
